FAERS Safety Report 6341141-1 (Version None)
Quarter: 2009Q3

REPORT INFORMATION
  Report Type: 
  Country: None (occurrence: None)
  Receive Date: 20090904
  Receipt Date: 20090206
  Transmission Date: 20100115
  Serious: No
  Sender: FDA-Public Use
  Company Number: A0767446A

PATIENT
  Age: 66 Year
  Sex: Female

DRUGS (3)
  1. REQUIP [Suspect]
     Indication: PARKINSON'S DISEASE
     Dosage: 4MG THREE TIMES PER DAY
     Route: 048
     Dates: start: 20050101
  2. REQUIP XL [Suspect]
     Indication: PARKINSON'S DISEASE
     Dosage: 12MG PER DAY
     Route: 048
     Dates: start: 20090119, end: 20090202
  3. AZILECT [Concomitant]

REACTIONS (2)
  - DIZZINESS [None]
  - SOMNOLENCE [None]
